FAERS Safety Report 24099523 (Version 1)
Quarter: 2024Q3

REPORT INFORMATION
  Report Type: Spontaneous
  Country: US (occurrence: US)
  Receive Date: 20240716
  Receipt Date: 20240716
  Transmission Date: 20241017
  Serious: No
  Sender: NOVO NORDISK
  Company Number: US-NOVOPROD-1207166

PATIENT
  Sex: Female

DRUGS (1)
  1. OZEMPIC [Suspect]
     Active Substance: SEMAGLUTIDE
     Indication: Type 2 diabetes mellitus
     Dosage: .25MG
     Route: 058

REACTIONS (5)
  - Oral pain [Not Recovered/Not Resolved]
  - Blood pressure increased [Unknown]
  - Device defective [Unknown]
  - Incorrect dose administered [Unknown]
  - Product design confusion [Unknown]
